FAERS Safety Report 12674384 (Version 1)
Quarter: 2016Q3

REPORT INFORMATION
  Report Type: Spontaneous
  Country: US (occurrence: US)
  Receive Date: 20160822
  Receipt Date: 20160822
  Transmission Date: 20161109
  Serious: No
  Sender: FDA-Public Use
  Company Number: US-BEH-2015057086

PATIENT
  Sex: Female
  Weight: 86.64 kg

DRUGS (16)
  1. LACTULOSE. [Concomitant]
     Active Substance: LACTULOSE
  2. ANTIVERT [Concomitant]
     Active Substance: MECLIZINE HYDROCHLORIDE
  3. ZEMAIRA [Suspect]
     Active Substance: .ALPHA.1-PROTEINASE INHIBITOR HUMAN
     Indication: ALPHA-1 ANTI-TRYPSIN DEFICIENCY
     Route: 042
     Dates: start: 20150429
  4. DIPHENHYDRAMINE. [Concomitant]
     Active Substance: DIPHENHYDRAMINE
  5. CORGARD [Concomitant]
     Active Substance: NADOLOL
  6. SYMBICORT [Concomitant]
     Active Substance: BUDESONIDE\FORMOTEROL FUMARATE DIHYDRATE
  7. TEMAZEPAM. [Concomitant]
     Active Substance: TEMAZEPAM
  8. LORAZEPAM. [Concomitant]
     Active Substance: LORAZEPAM
  9. XIFAXAN [Concomitant]
     Active Substance: RIFAXIMIN
  10. EPIPEN [Concomitant]
     Active Substance: EPINEPHRINE
  11. CARAFATE [Concomitant]
     Active Substance: SUCRALFATE
  12. NADOLOL. [Concomitant]
     Active Substance: NADOLOL
  13. LINZESS [Concomitant]
     Active Substance: LINACLOTIDE
  14. L-M-X [Concomitant]
  15. SODIUM CHLORIDE. [Concomitant]
     Active Substance: SODIUM CHLORIDE
  16. PANTOPRAZOLE [Concomitant]
     Active Substance: PANTOPRAZOLE SODIUM

REACTIONS (1)
  - Peripheral swelling [Unknown]
